FAERS Safety Report 9870956 (Version 1)
Quarter: 2014Q1

REPORT INFORMATION
  Report Type: Spontaneous
  Country: US (occurrence: None)
  Receive Date: 20140203
  Receipt Date: 20140203
  Transmission Date: 20141002
  Serious: Yes (Death)
  Sender: FDA-Public Use
  Company Number: 1401-0193

PATIENT
  Age: 81 Year
  Sex: 0

DRUGS (1)
  1. EYLEA (AFLIBERCEPT) (INJECTION) (AFLIBERCEPT) [Suspect]
     Dosage: INTRAVITREAL
     Dates: start: 20120613, end: 20130419

REACTIONS (1)
  - Death [None]
